FAERS Safety Report 4530755-7 (Version None)
Quarter: 2004Q4

REPORT INFORMATION
  Report Type: 
  Country: None (occurrence: None)
  Receive Date: 20041216
  Receipt Date: 20041201
  Transmission Date: 20050328
  Serious: No
  Sender: FDA-Public Use
  Company Number: 2004-09-0034

PATIENT
  Age: 11 Year
  Sex: Female
  Weight: 33 kg

DRUGS (2)
  1. CLARITIN [Suspect]
     Indication: RHINITIS ALLERGIC
     Dosage: 5 MG QD ORAL
     Route: 048
     Dates: start: 20040419
  2. BECONASE [Concomitant]

REACTIONS (2)
  - ABDOMINAL PAIN [None]
  - GASTROINTESTINAL DISORDER [None]
